FAERS Safety Report 9629871 (Version 1)
Quarter: 2013Q4

REPORT INFORMATION
  Report Type: Spontaneous
  Country: US (occurrence: US)
  Receive Date: 20131017
  Receipt Date: 20131017
  Transmission Date: 20140711
  Serious: Yes (Hospitalization)
  Sender: FDA-Public Use
  Company Number: US-BRISTOL-MYERS SQUIBB COMPANY-19518570

PATIENT
  Age: 18 Year
  Sex: Male

DRUGS (1)
  1. ABILIFY [Suspect]

REACTIONS (11)
  - Dyspnoea [Unknown]
  - Choking [Unknown]
  - Dysphagia [Unknown]
  - Euphoric mood [Unknown]
  - Crying [Unknown]
  - Weight decreased [Unknown]
  - Dyskinesia [Unknown]
  - Toe walking [Unknown]
  - Excessive eye blinking [Unknown]
  - Somnolence [Unknown]
  - Amnesia [Unknown]
